FAERS Safety Report 4578116-9 (Version None)
Quarter: 2005Q1

REPORT INFORMATION
  Report Type: 
  Country: None (occurrence: None)
  Receive Date: 20050209
  Receipt Date: 20050201
  Transmission Date: 20050727
  Serious: Yes (Hospitalization)
  Sender: FDA-Public Use
  Company Number: 2005023055

PATIENT
  Age: 40 Year
  Sex: Male

DRUGS (1)
  1. TAHOR (ATORVASTATIN) [Suspect]
     Indication: ILL-DEFINED DISORDER
     Dosage: 40 MG (1 IN 1 D),
     Dates: end: 20050131

REACTIONS (5)
  - HEPATIC CIRRHOSIS [None]
  - HEPATIC FAILURE [None]
  - RENAL FAILURE ACUTE [None]
  - RENAL INJURY [None]
  - RHABDOMYOLYSIS [None]
